FAERS Safety Report 7639961-6 (Version None)
Quarter: 2011Q3

REPORT INFORMATION
  Report Type: 
  Country: None (occurrence: None)
  Receive Date: 20110727
  Receipt Date: 20110722
  Transmission Date: 20111222
  Serious: Yes (Death)
  Sender: FDA-Public Use
  Company Number: GR-GILEAD-2011-0042232

PATIENT
  Age: 90 Year
  Sex: Male

DRUGS (3)
  1. RANEXA [Suspect]
     Indication: ANGINA PECTORIS
     Dates: start: 20110101
  2. MONOSORDIL [Concomitant]
  3. PLAVIX [Concomitant]

REACTIONS (1)
  - SUDDEN DEATH [None]
